FAERS Safety Report 8566201-6 (Version None)
Quarter: 2012Q3

REPORT INFORMATION
  Report Type: 
  Country: None (occurrence: None)
  Receive Date: 20120803
  Receipt Date: 20111017
  Transmission Date: 20120928
  Serious: No
  Sender: FDA-Public Use
  Company Number: US-ABBOTT-11P-163-0865499-00

PATIENT
  Sex: Male

DRUGS (5)
  1. CRESTOR [Concomitant]
     Indication: PRODUCT USED FOR UNKNOWN INDICATION
     Route: 048
  2. UNKNOWN MEDICATIONS [Concomitant]
     Indication: PRODUCT USED FOR UNKNOWN INDICATION
  3. NIASPAN [Suspect]
     Indication: BLOOD CHOLESTEROL ABNORMAL
     Dosage: 1 HOUR PRIOR TO BEDTIME
     Route: 048
     Dates: start: 20110401
  4. TRICOR [Concomitant]
     Indication: PRODUCT USED FOR UNKNOWN INDICATION
     Route: 048
  5. NIASPAN [Suspect]
     Indication: BLOOD TRIGLYCERIDES INCREASED

REACTIONS (4)
  - FLUSHING [None]
  - FEELING HOT [None]
  - ERYTHEMA [None]
  - PARAESTHESIA [None]
